FAERS Safety Report 5445522-X (Version None)
Quarter: 2007Q3

REPORT INFORMATION
  Report Type: 
  Country: None (occurrence: None)
  Receive Date: 20070906
  Receipt Date: 20070822
  Transmission Date: 20080115
  Serious: No
  Sender: FDA-Public Use
  Company Number: US-BOEHRINGER INGELHEIM PHARMACEUTICALS, INC.-2007-BP-18059BP

PATIENT
  Sex: Female

DRUGS (8)
  1. SPIRIVA [Suspect]
     Indication: CHRONIC OBSTRUCTIVE PULMONARY DISEASE
     Route: 055
     Dates: start: 20070719
  2. ADVAIR DISKUS 100/50 [Concomitant]
  3. XANAX [Concomitant]
  4. PAMELOR [Concomitant]
  5. MEVACOR [Concomitant]
  6. SINGULAIR [Concomitant]
  7. PRILOSEC [Concomitant]
  8. XOPENEX [Concomitant]

REACTIONS (2)
  - PRURITUS [None]
  - URTICARIA [None]
